FAERS Safety Report 6137015-1 (Version None)
Quarter: 2009Q1

REPORT INFORMATION
  Report Type: 
  Country: None (occurrence: None)
  Receive Date: 20090326
  Receipt Date: 20090326
  Transmission Date: 20090719
  Serious: Yes (Other)
  Sender: FDA-Public Use
  Company Number: None

PATIENT
  Age: 56 Year

DRUGS (5)
  1. FK506(TACROLIMUS) FORMULATION UNKNOWN [Suspect]
     Indication: STEM CELL TRANSPLANT
  2. EVEROLIMUS(EVEROLIMUS) EVEROLIMUS(EVEROLIMUS) [Suspect]
     Indication: STEM CELL TRANSPLANT
     Dosage: 1.5 MG, ORAL
     Route: 048
  3. BUSULFAN [Concomitant]
  4. FLUDARABINE PHOSPHATE [Concomitant]
  5. DEFIBROTIDE [Concomitant]

REACTIONS (4)
  - DRUG TOXICITY [None]
  - GRAFT VERSUS HOST DISEASE [None]
  - THROMBOTIC MICROANGIOPATHY [None]
  - VENOOCCLUSIVE LIVER DISEASE [None]
